FAERS Safety Report 9443656 (Version 1)
Quarter: 2013Q3

REPORT INFORMATION
  Report Type: Spontaneous
  Country: US (occurrence: US)
  Receive Date: 20130806
  Receipt Date: 20130806
  Transmission Date: 20140515
  Serious: No
  Sender: FDA-Public Use
  Company Number: US-PFIZER INC-2013228001

PATIENT
  Age: 62 Year
  Sex: Female
  Weight: 90.7 kg

DRUGS (4)
  1. EFFEXOR [Suspect]
     Indication: DEPRESSION
     Dosage: 225 MG, 1X/DAY
     Route: 048
  2. NEXIUM [Concomitant]
     Dosage: 40 MG, 1X/DAY
  3. HYDROCHLOROTHIAZIDE [Concomitant]
     Dosage: 25 MG, 1X/DAY
  4. LEVOXYL [Concomitant]
     Indication: HYPOTHYROIDISM
     Dosage: 175 MG, 1X/DAY

REACTIONS (5)
  - Feeling abnormal [Unknown]
  - Malaise [Unknown]
  - Drug withdrawal syndrome [Unknown]
  - Headache [Unknown]
  - Restlessness [Unknown]
